FAERS Safety Report 25589112 (Version 3)
Quarter: 2025Q3

REPORT INFORMATION
  Report Type: Spontaneous
  Country: GB (occurrence: GB)
  Receive Date: 20250722
  Receipt Date: 20250728
  Transmission Date: 20251020
  Serious: Yes (Disabling, Other)
  Sender: RECKITT BENCKISER
  Company Number: GB-PROD-AS2-212756134-20-25-GBR-RB-0013582

PATIENT
  Age: 57 Year
  Sex: Male

DRUGS (2)
  1. DETTOL FIRST AID ANTISEPTIC [Suspect]
     Active Substance: CHLOROXYLENOL
     Indication: Wound
     Route: 065
  2. DETTOL FIRST AID ANTISEPTIC [Suspect]
     Active Substance: CHLOROXYLENOL
     Indication: Infection prophylaxis

REACTIONS (5)
  - Sepsis [Not Recovered/Not Resolved]
  - Condition aggravated [Not Recovered/Not Resolved]
  - Skin exfoliation [Not Recovered/Not Resolved]
  - Pain [Not Recovered/Not Resolved]
  - Skin burning sensation [Not Recovered/Not Resolved]
